FAERS Safety Report 10274557 (Version 1)
Quarter: 2014Q3

REPORT INFORMATION
  Report Type: Report from Study
  Country: GB (occurrence: GB)
  Receive Date: 20140702
  Receipt Date: 20140702
  Transmission Date: 20150326
  Serious: Yes (Death)
  Sender: FDA-Public Use
  Company Number: GB-ABBVIE-14P-167-1253799-00

PATIENT
  Sex: Male
  Weight: 84 kg

DRUGS (2)
  1. METHOTREXATE [Concomitant]
     Active Substance: METHOTREXATE
     Indication: RHEUMATOID ARTHRITIS
  2. HUMIRA [Suspect]
     Active Substance: ADALIMUMAB
     Indication: RHEUMATOID ARTHRITIS
     Route: 058
     Dates: start: 20080404, end: 20100930

REACTIONS (3)
  - Prostate cancer metastatic [Fatal]
  - Bronchopneumonia [Fatal]
  - Sepsis [Fatal]
